FAERS Safety Report 6574960-7 (Version None)
Quarter: 2010Q1

REPORT INFORMATION
  Report Type: 
  Country: None (occurrence: None)
  Receive Date: 20100209
  Receipt Date: 20100204
  Transmission Date: 20100710
  Serious: Yes (Death, Hospitalization, Other)
  Sender: FDA-Public Use
  Company Number: PHEH2009US00841

PATIENT
  Sex: Male

DRUGS (27)
  1. ELIDEL [Suspect]
     Dosage: UNK
     Route: 061
     Dates: start: 20050503
  2. AMIODARONE HCL [Concomitant]
     Dosage: 8MCG/KG/MIN
     Dates: start: 20051228, end: 20060106
  3. LASIX [Concomitant]
     Dosage: 1MG/KG
     Route: 040
     Dates: start: 20060104, end: 20060120
  4. ALBUMIN NOS [Concomitant]
     Dosage: 25% 1G OVER 3HRS
     Dates: start: 20051228, end: 20060120
  5. FENTANYL-100 [Concomitant]
     Dosage: 3MCG/KG/MIN
     Dates: start: 20051228, end: 20060120
  6. VERSED [Concomitant]
     Dosage: UNK
     Dates: start: 20051228
  7. VANCOMYCIN [Concomitant]
     Dosage: 15MG.KG QD
     Dates: start: 20060104
  8. DIFLUCAN [Concomitant]
     Dosage: 6MG/KG
     Dates: start: 20060104
  9. RANITIDINE [Concomitant]
     Dosage: UNK
  10. ALLOPURINOL [Concomitant]
     Dosage: UNK
  11. FACTOR VII (PROCONVERTIN) [Concomitant]
     Dosage: UNK
     Dates: start: 20060109
  12. VITAMIN K TAB [Concomitant]
     Dosage: UNK
     Dates: start: 20060109
  13. AMPICILLIN [Concomitant]
     Dosage: UNK
  14. GENTAMICIN [Concomitant]
     Dosage: UNK
  15. MEROPENEM [Concomitant]
     Dosage: UNK
  16. BACTRIUM DS [Concomitant]
     Dosage: UNK
  17. CEFTRIAXONE [Concomitant]
     Dosage: UNK
     Dates: start: 20051228, end: 20051230
  18. UNASYN [Concomitant]
     Dosage: UNK
     Dates: start: 20051230, end: 20060104
  19. CLINDAMYCIN [Concomitant]
     Dosage: UNK
     Dates: start: 20051231, end: 20060103
  20. ZOSYN [Concomitant]
     Dosage: UNK
     Dates: start: 20060110, end: 20060120
  21. METHYLPREDNISOLONE ^DAKOTA PHARM^ [Concomitant]
     Dosage: 5MG TID
     Dates: start: 20060107
  22. REGLAN [Concomitant]
     Dosage: 1.25MG QID
     Dates: start: 20060112, end: 20060120
  23. PROTONIX [Concomitant]
     Dosage: 10MG QD
     Dates: start: 20060113, end: 20060120
  24. ZOFRAN [Concomitant]
     Dosage: 1.5 MG PRN
     Dates: start: 20060107, end: 20060120
  25. AMOXICILLIN [Concomitant]
     Dosage: 125MG PO TID X10 DAYS
  26. TYLENOL-500 [Concomitant]
     Dosage: 100MG Q4H PO
  27. DOPAMINE HCL [Concomitant]
     Dosage: GTT TITRATE FOR MAP}60
     Dates: start: 20051228

REACTIONS (51)
  - ABDOMINAL DISTENSION [None]
  - ACUTE LYMPHOCYTIC LEUKAEMIA [None]
  - ANAEMIA [None]
  - ANXIETY [None]
  - ATROPHY [None]
  - BACTERAEMIA [None]
  - BILIRUBIN CONJUGATED INCREASED [None]
  - BLOOD PRODUCT TRANSFUSION [None]
  - CARDIAC ARREST [None]
  - CEREBRAL INFARCTION [None]
  - DECREASED APPETITE [None]
  - DISSEMINATED INTRAVASCULAR COAGULATION [None]
  - DYSPNOEA [None]
  - EPISTAXIS [None]
  - FATIGUE [None]
  - GASTRIC ULCER HAEMORRHAGE [None]
  - GASTRITIS [None]
  - GASTROINTESTINAL HAEMORRHAGE [None]
  - GENERALISED OEDEMA [None]
  - HAEMOTHORAX [None]
  - HYPOGLYCAEMIA [None]
  - HYPOKALAEMIC SYNDROME [None]
  - INJURY [None]
  - INTESTINAL ISCHAEMIA [None]
  - IRRITABILITY [None]
  - JAUNDICE [None]
  - LEFT ATRIAL DILATATION [None]
  - MALAISE [None]
  - METABOLIC ACIDOSIS [None]
  - MULTI-ORGAN DISORDER [None]
  - MULTI-ORGAN FAILURE [None]
  - NAUSEA [None]
  - NEUTROPENIA [None]
  - OTITIS MEDIA [None]
  - PAIN [None]
  - PALLOR [None]
  - PANCYTOPENIA [None]
  - PNEUMONIA BACTERIAL [None]
  - PYREXIA [None]
  - QUALITY OF LIFE DECREASED [None]
  - RENAL FAILURE [None]
  - RHINORRHOEA [None]
  - SEPTIC SHOCK [None]
  - SUBDURAL HAEMATOMA [None]
  - SUPRAVENTRICULAR TACHYCARDIA [None]
  - SYSTEMIC INFLAMMATORY RESPONSE SYNDROME [None]
  - UNRESPONSIVE TO STIMULI [None]
  - UPPER RESPIRATORY TRACT INFECTION [None]
  - VENTRICULAR HYPERTROPHY [None]
  - VENTRICULAR TACHYCARDIA [None]
  - WEIGHT DECREASED [None]
